FAERS Safety Report 8717148 (Version 2)
Quarter: 2013Q1

REPORT INFORMATION
  Report Type: Report from Study
  Country: US (occurrence: US)
  Receive Date: 20120810
  Receipt Date: 20130121
  Transmission Date: 20140127
  Serious: Yes (Hospitalization)
  Sender: FDA-Public Use
  Company Number: US-GENZYME-LEUK-1000122

PATIENT
  Age: 82 Year
  Sex: Male
  Weight: 77.3 kg

DRUGS (22)
  1. LEUKINE [Suspect]
     Indication: MALIGNANT MELANOMA
     Dosage: 250 MCG, QD, ON DAYS 1-14
     Route: 058
     Dates: start: 20110421, end: 20110707
  2. IPILIMUMAB [Suspect]
     Indication: MALIGNANT MELANOMA
     Dosage: 10 MG/KG OVER 90 MIN ON DAY 1
     Route: 042
     Dates: start: 20110421, end: 20110624
  3. ASPIRIN [Concomitant]
     Indication: PRODUCT USED FOR UNKNOWN INDICATION
     Dosage: 81 MG, UNK
     Route: 065
     Dates: start: 2011
  4. PREDNISONE [Concomitant]
     Indication: COLITIS
     Dosage: 60 MG, QD (HIGH DOSE)
     Route: 048
     Dates: start: 20110718
  5. PREDNISONE [Concomitant]
     Dosage: UNK
     Route: 042
     Dates: start: 20110719
  6. PREDNISONE [Concomitant]
     Dosage: 60 MG, QD
     Route: 065
     Dates: start: 20110722
  7. PREDNISONE [Concomitant]
     Dosage: 50 MG, BID
     Route: 065
     Dates: start: 20110824
  8. PREDNISONE [Concomitant]
     Dosage: 60 MG, BID
     Route: 048
     Dates: start: 20110819
  9. PREDNISONE [Concomitant]
     Dosage: 40 MG, QD
     Route: 065
     Dates: start: 2011
  10. PREDNISONE [Concomitant]
  11. PREDNISONE [Concomitant]
     Dosage: 120 MG, QD
     Route: 065
     Dates: start: 2011
  12. PREDNISONE [Concomitant]
     Dosage: 60 MG, QD
     Route: 065
     Dates: start: 2011
  13. PREDNISONE [Concomitant]
     Dosage: 20 MG, TID
     Route: 065
     Dates: start: 2011
  14. DOXAZOSIN [Concomitant]
     Indication: PRODUCT USED FOR UNKNOWN INDICATION
     Dosage: 6 MG, UNK (4 MG IN MORNING, 2 MG AT NIGHT)
     Route: 065
     Dates: start: 2011
  15. ENDOCORT [Concomitant]
     Indication: PRODUCT USED FOR UNKNOWN INDICATION
     Dosage: 9 MG, QD PILL
     Route: 065
     Dates: start: 2011
  16. CARDURA [Concomitant]
     Indication: BENIGN PROSTATIC HYPERPLASIA
     Dosage: 4 MG, AT BEDTIME
     Route: 065
     Dates: start: 2011
  17. CARDURA [Concomitant]
     Dosage: 4 MG, BID
     Route: 065
     Dates: start: 2011
  18. REMICADE [Concomitant]
     Indication: PRODUCT USED FOR UNKNOWN INDICATION
     Dosage: UNK
     Route: 065
     Dates: start: 2011
  19. PRILOSEC [Concomitant]
     Indication: PRODUCT USED FOR UNKNOWN INDICATION
     Dosage: 20 MG, QD
     Route: 065
     Dates: start: 2011
  20. PRILOSEC [Concomitant]
     Dosage: 20 MG, BID
     Route: 065
     Dates: start: 2011
  21. MAGNESIUM OXIDE [Concomitant]
     Indication: PRODUCT USED FOR UNKNOWN INDICATION
     Dosage: 400 MG, BID
     Route: 065
     Dates: start: 2011
  22. PRESERVISION EYE VITAMIN AND MINERAL SUPPL. [Concomitant]
     Indication: PRODUCT USED FOR UNKNOWN INDICATION
     Dosage: UNK
     Route: 065

REACTIONS (4)
  - Arthralgia [Recovered/Resolved]
  - Colitis [Recovered/Resolved]
  - Presyncope [Recovered/Resolved]
  - Diarrhoea [Recovered/Resolved]
